FAERS Safety Report 5484622-5 (Version None)
Quarter: 2007Q4

REPORT INFORMATION
  Report Type: 
  Country: None (occurrence: None)
  Receive Date: 20071012
  Receipt Date: 20071002
  Transmission Date: 20080405
  Serious: Yes (Other)
  Sender: FDA-Public Use
  Company Number: GB-PFIZER INC-2007083879

PATIENT
  Age: 41 Year
  Sex: Female
  Weight: 58 kg

DRUGS (3)
  1. CHAMPIX [Suspect]
     Indication: SMOKING CESSATION THERAPY
     Route: 048
     Dates: start: 20070903, end: 20070912
  2. LEVOTHYROXINE SODIUM [Concomitant]
     Route: 048
  3. NICORETTE [Concomitant]
     Route: 048

REACTIONS (2)
  - NAUSEA [None]
  - RETCHING [None]
